FAERS Safety Report 11710612 (Version 2)
Quarter: 2015Q4

REPORT INFORMATION
  Report Type: Spontaneous
  Country: US (occurrence: US)
  Receive Date: 20151104
  Receipt Date: 20151110
  Transmission Date: 20160304
  Serious: No
  Sender: FDA-Public Use
  Company Number: US-ELI_LILLY_AND_COMPANY-US201106000850

PATIENT
  Sex: Female

DRUGS (1)
  1. FORTEO [Suspect]
     Active Substance: TERIPARATIDE
     Indication: OSTEOPOROSIS

REACTIONS (6)
  - Injection site erythema [Unknown]
  - Injection site bruising [Unknown]
  - Adverse event [Unknown]
  - Superficial vein prominence [Unknown]
  - Dizziness [Unknown]
  - Nausea [Recovering/Resolving]
